FAERS Safety Report 7526843-3 (Version None)
Quarter: 2011Q2

REPORT INFORMATION
  Report Type: 
  Country: None (occurrence: None)
  Receive Date: 20110606
  Receipt Date: 20110524
  Transmission Date: 20111010
  Serious: Yes (Other)
  Sender: FDA-Public Use
  Company Number: PHFR2011GB00574

PATIENT
  Sex: Male

DRUGS (8)
  1. TIOTROPIUM [Concomitant]
     Dosage: 18 UG, QD
  2. SERETIDE EVOHALER [Concomitant]
     Dosage: 1 PUFF BD
  3. CLOZAPINE [Suspect]
     Indication: SCHIZOPHRENIA
     Route: 048
     Dates: start: 20010323
  4. LANSOPRAZOLE [Concomitant]
     Dosage: 30 MG, QD
     Route: 048
  5. ESCITALOPRAM [Concomitant]
     Dosage: 10 MG, QD
     Route: 048
  6. CLOZAPINE [Suspect]
     Dosage: 300 MG, BID
     Route: 048
  7. DOCUSATE SODIUM [Concomitant]
     Dosage: 200 MG, BID
     Route: 048
  8. GAVISCON [Concomitant]
     Dosage: 5 ML, QD
     Route: 048

REACTIONS (9)
  - AORTIC CALCIFICATION [None]
  - HAEMATOCRIT DECREASED [None]
  - CARDIAC MURMUR [None]
  - LEFT VENTRICULAR FAILURE [None]
  - DIFFERENTIAL WHITE BLOOD CELL COUNT ABNORMAL [None]
  - MEAN CELL HAEMOGLOBIN DECREASED [None]
  - EOSINOPHIL COUNT INCREASED [None]
  - LYMPHOCYTE COUNT INCREASED [None]
  - ANAEMIA [None]
